FAERS Safety Report 24722486 (Version 1)
Quarter: 2024Q4

REPORT INFORMATION
  Report Type: Spontaneous
  Country: JP (occurrence: JP)
  Receive Date: 20241211
  Receipt Date: 20241211
  Transmission Date: 20250115
  Serious: Yes (Death, Other)
  Sender: DAIICHI
  Company Number: JP-DSJP-DSJ-2024-102760

PATIENT
  Age: 75 Year
  Sex: Male
  Weight: 89.6 kg

DRUGS (16)
  1. ENHERTU [Suspect]
     Active Substance: FAM-TRASTUZUMAB DERUXTECAN-NXKI
     Indication: HER2 positive gastric cancer
     Dosage: 6.4 MG/KG, ONCE EVERY 3 WK
     Route: 041
     Dates: start: 20231221, end: 20231221
  2. ENHERTU [Suspect]
     Active Substance: FAM-TRASTUZUMAB DERUXTECAN-NXKI
     Dosage: 5.4 MG/KG, ONCE EVERY 3 WK
     Route: 041
     Dates: start: 20240111
  3. ENHERTU [Suspect]
     Active Substance: FAM-TRASTUZUMAB DERUXTECAN-NXKI
     Dosage: 5.4 MG/KG, ONCE EVERY 3 WK
     Route: 041
     Dates: start: 20240201, end: 20240201
  4. ENHERTU [Suspect]
     Active Substance: FAM-TRASTUZUMAB DERUXTECAN-NXKI
     Dosage: 5.4 MG/KG, ONCE EVERY 3 WK
     Route: 041
     Dates: start: 20240229, end: 20240229
  5. ENHERTU [Suspect]
     Active Substance: FAM-TRASTUZUMAB DERUXTECAN-NXKI
     Dosage: 5.4 MG/KG, ONCE EVERY 3 WK
     Route: 041
     Dates: start: 20240321, end: 20240321
  6. ESOMEPRAZOLE [Concomitant]
     Active Substance: ESOMEPRAZOLE
     Indication: Gastric cancer
     Dosage: 20 MG, QD
     Route: 048
     Dates: start: 20220421
  7. METHYLCOBALAMIN [Concomitant]
     Active Substance: METHYLCOBALAMIN
     Indication: Neuropathy peripheral
     Dosage: 0.5 MG, TID
     Route: 048
     Dates: start: 20221215
  8. MIROGABALIN BESYLATE [Concomitant]
     Active Substance: MIROGABALIN BESYLATE
     Indication: Neuropathy peripheral
     Dosage: 10 MG, BID
     Route: 048
     Dates: start: 20230105
  9. CARBOCYSTEINE [Concomitant]
     Active Substance: CARBOCYSTEINE
     Indication: Sinusitis
     Dosage: 500 MG, TID
     Route: 048
     Dates: start: 20230511
  10. MOSAPRIDE CITRATE [Concomitant]
     Active Substance: MOSAPRIDE CITRATE
     Indication: Epigastric discomfort
     Dosage: 5 MG, TID
     Route: 048
     Dates: start: 20230928, end: 20240430
  11. ZINC ACETATE [Concomitant]
     Active Substance: ZINC ACETATE
     Indication: Zinc deficiency
     Dosage: 25 MG, BID
     Route: 048
     Dates: start: 20221117, end: 20240321
  12. METOCLOPRAMIDE [Concomitant]
     Active Substance: METOCLOPRAMIDE
     Indication: Nausea
     Dosage: 5 MG, TID
     Route: 048
     Dates: start: 20240111, end: 20240321
  13. MAGNESIUM OXIDE [Concomitant]
     Active Substance: MAGNESIUM OXIDE
     Indication: Constipation
     Dosage: 250 MG, TID
     Route: 048
     Dates: start: 20240201, end: 20240222
  14. LAGNOS NF [Concomitant]
     Indication: Constipation
     Dosage: 12 G, QD
     Route: 048
     Dates: start: 20240222
  15. HERBALS [Concomitant]
     Active Substance: HERBALS
     Indication: Abdominal distension
     Dosage: 2.5 G, TID
     Route: 048
     Dates: start: 20240321
  16. SODIUM PICOSULFATE [Concomitant]
     Active Substance: SODIUM PICOSULFATE
     Indication: Constipation
     Dosage: 2.5 MG, QD
     Route: 048
     Dates: start: 20240321, end: 20240426

REACTIONS (5)
  - Interstitial lung disease [Fatal]
  - Ascites [Recovering/Resolving]
  - Neutrophil count decreased [Recovered/Resolved]
  - Decreased appetite [Recovering/Resolving]
  - Malaise [Not Recovered/Not Resolved]

NARRATIVE: CASE EVENT DATE: 20240201
